FAERS Safety Report 24365511 (Version 2)
Quarter: 2024Q4

REPORT INFORMATION
  Report Type: Report from Study
  Country: IN (occurrence: IN)
  Receive Date: 20240926
  Receipt Date: 20241009
  Transmission Date: 20250115
  Serious: Yes (Death, Other)
  Sender: CIPLA
  Company Number: IN-CIPLA LTD.-2024IN10494

PATIENT

DRUGS (6)
  1. ACYCLOVIR [Suspect]
     Active Substance: ACYCLOVIR
     Indication: Prophylaxis
     Dosage: 100 MILLIGRAM, TID (1/4 TH  TABLET (10 MG/KG/DOSE), (22.5 DOSE TABLET)
     Route: 048
     Dates: start: 20240522, end: 20240630
  2. ACYCLOVIR [Suspect]
     Active Substance: ACYCLOVIR
     Indication: Varicella
  3. MINIRIN [Concomitant]
     Active Substance: DESMOPRESSIN ACETATE
     Indication: Product used for unknown indication
     Dosage: UNK
     Route: 065
  4. VERFEN [Concomitant]
     Indication: Product used for unknown indication
     Dosage: UNK
     Route: 065
  5. ACETAMINOPHEN [Concomitant]
     Active Substance: ACETAMINOPHEN
     Indication: Product used for unknown indication
     Dosage: UNK
     Route: 065
  6. NORBIT [NOREPINEPHRINE BITARTRATE] [Concomitant]
     Indication: Product used for unknown indication
     Dosage: UNK
     Route: 065

REACTIONS (6)
  - Septic shock [Fatal]
  - Pneumonia viral [Fatal]
  - Respiratory failure [Fatal]
  - Bacteraemia [Unknown]
  - Sepsis [Unknown]
  - Acute respiratory distress syndrome [Unknown]

NARRATIVE: CASE EVENT DATE: 20240101
